FAERS Safety Report 9146533 (Version 1)
Quarter: 2013Q1

REPORT INFORMATION
  Report Type: Spontaneous
  Country: US (occurrence: US)
  Receive Date: 20130307
  Receipt Date: 20130307
  Transmission Date: 20140127
  Serious: Yes (Other)
  Sender: FDA-Public Use
  Company Number: US-GLAXOSMITHKLINE-A0997191A

PATIENT
  Age: 72 Year
  Sex: Female

DRUGS (2)
  1. REQUIP [Suspect]
     Indication: RESTLESS LEGS SYNDROME
     Dosage: 6MG PER DAY
     Route: 065
  2. CONCURRENT MEDICATIONS [Concomitant]

REACTIONS (3)
  - Suicide attempt [Unknown]
  - Drug ineffective [Unknown]
  - Overdose [Unknown]
